FAERS Safety Report 25069450 (Version 2)
Quarter: 2025Q2

REPORT INFORMATION
  Report Type: Spontaneous
  Country: US (occurrence: US)
  Receive Date: 20250312
  Receipt Date: 20250606
  Transmission Date: 20250717
  Serious: Yes (Hospitalization)
  Sender: JOHNSON AND JOHNSON
  Company Number: US-JNJFOC-20250274232

PATIENT
  Sex: Female

DRUGS (2)
  1. RYBREVANT [Suspect]
     Active Substance: AMIVANTAMAB-VMJW
     Indication: Product used for unknown indication
     Route: 042
  2. LAZCLUZE [Suspect]
     Active Substance: LAZERTINIB
     Indication: Product used for unknown indication
     Route: 048

REACTIONS (2)
  - Sepsis [Unknown]
  - Periorbital swelling [Unknown]
